FAERS Safety Report 5648991-5 (Version None)
Quarter: 2008Q1

REPORT INFORMATION
  Report Type: 
  Country: None (occurrence: None)
  Receive Date: 20080304
  Receipt Date: 20080125
  Transmission Date: 20080703
  Serious: No
  Sender: FDA-Public Use
  Company Number: US-BAYER-200812185NA

PATIENT
  Age: 75 Year
  Sex: Male
  Weight: 117 kg

DRUGS (2)
  1. ULTRAVIST 150 [Suspect]
     Indication: COMPUTERISED TOMOGRAM
     Dosage: TOTAL DAILY DOSE: 150 ML  UNIT DOSE: 150 ML
     Route: 042
     Dates: start: 20080125, end: 20080125
  2. ANALGESIC [Concomitant]

REACTIONS (4)
  - ANXIETY [None]
  - ERYTHEMA [None]
  - FLUSHING [None]
  - PRURITUS [None]
